FAERS Safety Report 5239682-3 (Version None)
Quarter: 2007Q1

REPORT INFORMATION
  Report Type: 
  Country: None (occurrence: None)
  Receive Date: 20070216
  Receipt Date: 20070208
  Transmission Date: 20070707
  Serious: Yes (Hospitalization)
  Sender: FDA-Public Use
  Company Number: US-SANOFI-SYNTHELABO-F03200700035

PATIENT
  Sex: Female

DRUGS (6)
  1. ENBREL [Concomitant]
     Route: 030
     Dates: start: 20060308
  2. MICARDIS VS. PLACEBO [Suspect]
     Indication: PROPHYLAXIS
     Dosage: UNK
     Route: 048
     Dates: start: 20060304, end: 20070126
  3. AGGRENOX VS. PLACEBO [Suspect]
     Indication: PROPHYLAXIS
     Dosage: UNK
     Route: 048
     Dates: start: 20060304, end: 20070126
  4. CLOPIDOGREL [Suspect]
     Indication: PROPHYLAXIS
     Dosage: UNK
     Route: 048
     Dates: start: 20060304, end: 20070126
  5. CLINORIL [Suspect]
     Route: 048
     Dates: start: 20070107, end: 20070126
  6. DIPYRIDAMOLE + ASPIRIN [Suspect]
     Dosage: UNK
     Route: 048

REACTIONS (1)
  - COLITIS ISCHAEMIC [None]
